FAERS Safety Report 10395691 (Version 1)
Quarter: 2014Q1

REPORT INFORMATION
  Report Type: Spontaneous
  Country: US (occurrence: None)
  Receive Date: 20130724
  Receipt Date: 20130724
  Transmission Date: 20141002
  Serious: Yes (Hospitalization)
  Sender: FDA-Public Use
  Company Number: PHEH2011US012719

PATIENT
  Age: 85 Year
  Sex: Female

DRUGS (2)
  1. GLEEVEC [Suspect]
     Indication: GASTRIC CANCER
     Route: 048
     Dates: start: 20110826, end: 20111222
  2. EPSOM SALTS (MAGNESIUM SULFATE) [Concomitant]

REACTIONS (6)
  - Fluid retention [None]
  - Acne [None]
  - Muscle spasms [None]
  - Joint swelling [None]
  - Eyelid oedema [None]
  - Rash [None]
